FAERS Safety Report 22874212 (Version 3)
Quarter: 2023Q4

REPORT INFORMATION
  Report Type: Report from Study
  Country: US (occurrence: US)
  Receive Date: 20230828
  Receipt Date: 20231005
  Transmission Date: 20240109
  Serious: Yes (Other)
  Sender: FDA-Public Use
  Company Number: US-BIOGEN-2022BI01169340

PATIENT
  Sex: Female
  Weight: 90.71 kg

DRUGS (4)
  1. TYSABRI [Suspect]
     Active Substance: NATALIZUMAB
     Indication: Multiple sclerosis
     Route: 050
     Dates: start: 20220503, end: 20220822
  2. TYSABRI [Suspect]
     Active Substance: NATALIZUMAB
     Route: 050
     Dates: end: 20221207
  3. TYSABRI [Suspect]
     Active Substance: NATALIZUMAB
     Dosage: 300 MG/15 ML
     Route: 050
     Dates: start: 202306
  4. VITAMIN B12- FOLIC ACID [Concomitant]
     Indication: Product used for unknown indication
     Route: 050

REACTIONS (4)
  - Caesarean section [Recovered/Resolved]
  - Postpartum haemorrhage [Unknown]
  - Maternal exposure during pregnancy [Recovered/Resolved]
  - Anaemia [Unknown]

NARRATIVE: CASE EVENT DATE: 20230101
